FAERS Safety Report 17051123 (Version 2)
Quarter: 2019Q4

REPORT INFORMATION
  Report Type: Spontaneous
  Country: JP (occurrence: JP)
  Receive Date: 20191120
  Receipt Date: 20191225
  Transmission Date: 20200122
  Serious: Yes (Hospitalization)
  Sender: FDA-Public Use
  Company Number: JP-ASTRAZENECA-2019SF63503

PATIENT
  Age: 65 Year
  Sex: Female

DRUGS (3)
  1. TAGRISSO [Suspect]
     Active Substance: OSIMERTINIB
     Indication: NON-SMALL CELL LUNG CANCER
     Route: 048
     Dates: start: 20191101, end: 20191105
  2. TAGRISSO [Suspect]
     Active Substance: OSIMERTINIB
     Indication: NON-SMALL CELL LUNG CANCER
     Route: 048
     Dates: start: 201911
  3. CELECOX [Suspect]
     Active Substance: CELECOXIB
     Indication: CANCER PAIN
     Route: 048

REACTIONS (2)
  - Skin disorder [Recovered/Resolved]
  - Lung opacity [Recovering/Resolving]

NARRATIVE: CASE EVENT DATE: 20191105
